FAERS Safety Report 23319655 (Version 1)
Quarter: 2023Q4

REPORT INFORMATION
  Report Type: Spontaneous
  Country: BR (occurrence: BR)
  Receive Date: 20231220
  Receipt Date: 20231220
  Transmission Date: 20240110
  Serious: Yes (Hospitalization, Other)
  Sender: FDA-Public Use
  Company Number: BR-GLAXOSMITHKLINE-BR2018GSK230290

PATIENT

DRUGS (4)
  1. BENLYSTA [Suspect]
     Active Substance: BELIMUMAB
     Indication: Systemic lupus erythematosus
     Dosage: 500 MG
     Route: 042
     Dates: start: 20150101
  2. BENLYSTA [Suspect]
     Active Substance: BELIMUMAB
     Dosage: 120 MG, Q4W (5 X 120MG)
     Route: 042
  3. INFLUENZA VIRUS VACCINE [Suspect]
     Active Substance: INFLUENZA VIRUS VACCINE
     Indication: Prophylaxis
     Dosage: UNK
  4. NUCALA [Concomitant]
     Active Substance: MEPOLIZUMAB
     Indication: Product used for unknown indication
     Dosage: UNK

REACTIONS (12)
  - Cerebrovascular accident [Unknown]
  - Influenza [Unknown]
  - Urinary tract infection [Recovered/Resolved]
  - Dental discomfort [Unknown]
  - Malaise [Unknown]
  - Hypertension [Recovered/Resolved]
  - Vomiting [Unknown]
  - Headache [Unknown]
  - Nervousness [Recovering/Resolving]
  - Mouth injury [Unknown]
  - Product dose omission issue [Not Recovered/Not Resolved]
  - Inappropriate schedule of product administration [Recovered/Resolved]

NARRATIVE: CASE EVENT DATE: 20211201
